FAERS Safety Report 5137951-9 (Version None)
Quarter: 2006Q4

REPORT INFORMATION
  Report Type: 
  Country: None (occurrence: None)
  Receive Date: 20061030
  Receipt Date: 20060322
  Transmission Date: 20070319
  Serious: No
  Sender: FDA-Public Use
  Company Number: US-GLAXOSMITHKLINE-A0598601A

PATIENT
  Age: 70 Year
  Sex: Male

DRUGS (4)
  1. ADVAIR HFA [Suspect]
     Indication: CHRONIC OBSTRUCTIVE PULMONARY DISEASE
     Dosage: 1PUFF TWICE PER DAY
     Route: 055
     Dates: start: 20051201, end: 20060320
  2. SPIRIVA [Concomitant]
  3. ALBUTEROL [Concomitant]
  4. CHLORHEXIDINE GLUCONATE [Concomitant]

REACTIONS (2)
  - DRY MOUTH [None]
  - ORAL PAIN [None]
